FAERS Safety Report 17850422 (Version 7)
Quarter: 2021Q4

REPORT INFORMATION
  Report Type: Report from Study
  Country: CA (occurrence: CA)
  Receive Date: 20200602
  Receipt Date: 20211106
  Transmission Date: 20220303
  Serious: Yes (Hospitalization, Other)
  Sender: FDA-Public Use
  Company Number: PHHY2015CA086396

PATIENT
  Age: 7 Year
  Sex: Female

DRUGS (41)
  1. ILARIS [Suspect]
     Active Substance: CANAKINUMAB
     Indication: Chronic infantile neurological cutaneous and articular syndrome
     Dosage: 150 MG, EVERY 6 WEEKS
     Route: 058
     Dates: start: 20150125
  2. ILARIS [Suspect]
     Active Substance: CANAKINUMAB
     Dosage: 110 MG, Q 8 WEEKS
     Route: 058
     Dates: start: 20151104
  3. ILARIS [Suspect]
     Active Substance: CANAKINUMAB
     Dosage: 110 MG, Q 8 WEEKS
     Route: 058
     Dates: start: 20151230
  4. ILARIS [Suspect]
     Active Substance: CANAKINUMAB
     Dosage: 110 MG, Q 8 WEEKS
     Route: 058
     Dates: start: 20160225
  5. ILARIS [Suspect]
     Active Substance: CANAKINUMAB
     Dosage: 110 MG, Q 8 WEEKS
     Route: 058
     Dates: start: 20160420
  6. ILARIS [Suspect]
     Active Substance: CANAKINUMAB
     Dosage: 110 MG, Q 8 WEEKS
     Route: 058
     Dates: start: 20160615
  7. ILARIS [Suspect]
     Active Substance: CANAKINUMAB
     Dosage: 110 MG, EVERY 7 WEEKS
     Route: 058
     Dates: start: 20160803
  8. ILARIS [Suspect]
     Active Substance: CANAKINUMAB
     Dosage: 110 MG, EVERY 7 WEEKS
     Route: 058
     Dates: start: 20160922
  9. ILARIS [Suspect]
     Active Substance: CANAKINUMAB
     Dosage: 110 MG, EVERY 7 WEEKS
     Route: 058
     Dates: end: 20161129
  10. ILARIS [Suspect]
     Active Substance: CANAKINUMAB
     Dosage: 150 MG, EVERY 8 WEEKS
     Route: 058
     Dates: start: 201612
  11. ILARIS [Suspect]
     Active Substance: CANAKINUMAB
     Dosage: UNK
     Route: 065
     Dates: start: 20170224
  12. ILARIS [Suspect]
     Active Substance: CANAKINUMAB
     Dosage: UNK
     Route: 058
     Dates: start: 20170421
  13. ILARIS [Suspect]
     Active Substance: CANAKINUMAB
     Dosage: UNK
     Route: 058
     Dates: start: 20170614
  14. ILARIS [Suspect]
     Active Substance: CANAKINUMAB
     Dosage: UNK
     Route: 058
     Dates: start: 20170809
  15. ILARIS [Suspect]
     Active Substance: CANAKINUMAB
     Dosage: UNK, EVERY 6 WEEKS
     Route: 065
     Dates: start: 201709
  16. ILARIS [Suspect]
     Active Substance: CANAKINUMAB
     Dosage: UNK
     Route: 065
     Dates: start: 20171004
  17. ILARIS [Suspect]
     Active Substance: CANAKINUMAB
     Dosage: UNK
     Route: 065
     Dates: start: 20171116
  18. ILARIS [Suspect]
     Active Substance: CANAKINUMAB
     Dosage: 150 UNK, EVERY 6 WEEKS
     Route: 058
     Dates: start: 20171227
  19. ILARIS [Suspect]
     Active Substance: CANAKINUMAB
     Dosage: 150 MG, EVERY 6 WEEKS
     Route: 058
     Dates: start: 20180207
  20. ILARIS [Suspect]
     Active Substance: CANAKINUMAB
     Dosage: 150 MG, EVERY 6 WEEKS
     Route: 058
     Dates: start: 20180321
  21. ILARIS [Suspect]
     Active Substance: CANAKINUMAB
     Dosage: 150 MG, EVERY 6 WEEKS
     Route: 058
     Dates: start: 20180502
  22. ILARIS [Suspect]
     Active Substance: CANAKINUMAB
     Dosage: 150 MG, EVERY 6 WEEKS
     Route: 058
     Dates: start: 20180603
  23. ILARIS [Suspect]
     Active Substance: CANAKINUMAB
     Dosage: 150 MG, EVERY 6 WEEKS
     Route: 058
     Dates: start: 20180725
  24. ILARIS [Suspect]
     Active Substance: CANAKINUMAB
     Dosage: UNK
     Route: 065
     Dates: start: 20180905
  25. ILARIS [Suspect]
     Active Substance: CANAKINUMAB
     Dosage: UNK
     Route: 065
     Dates: start: 20181017
  26. ILARIS [Suspect]
     Active Substance: CANAKINUMAB
     Dosage: 150 MG, EVERY 6 WEEKS
     Route: 058
     Dates: start: 20181128
  27. ILARIS [Suspect]
     Active Substance: CANAKINUMAB
     Dosage: 150 MG, EVERY 6 WEEKS
     Route: 058
     Dates: start: 20190109
  28. ILARIS [Suspect]
     Active Substance: CANAKINUMAB
     Dosage: 150 MG, EVERY 6 WEEKS
     Route: 058
     Dates: start: 20190221
  29. ILARIS [Suspect]
     Active Substance: CANAKINUMAB
     Dosage: 150 MG, EVERY 6 WEEKS
     Route: 058
     Dates: start: 20190403
  30. ILARIS [Suspect]
     Active Substance: CANAKINUMAB
     Dosage: 150 MG, EVERY 6 WEEKS
     Route: 058
     Dates: start: 20190514
  31. ILARIS [Suspect]
     Active Substance: CANAKINUMAB
     Dosage: 150 MG, EVERY 6 WEEKS
     Route: 058
     Dates: start: 20190626
  32. ILARIS [Suspect]
     Active Substance: CANAKINUMAB
     Dosage: 150 MG, EVERY 6 WEEKS
     Route: 058
     Dates: start: 20190807
  33. ILARIS [Suspect]
     Active Substance: CANAKINUMAB
     Dosage: 150 MG
     Route: 058
     Dates: start: 20190918
  34. ILARIS [Suspect]
     Active Substance: CANAKINUMAB
     Dosage: 150 MG, EVERY 6 WEEKS
     Route: 065
     Dates: start: 20191030
  35. ILARIS [Suspect]
     Active Substance: CANAKINUMAB
     Dosage: UNK
     Route: 065
     Dates: start: 20200122
  36. ILARIS [Suspect]
     Active Substance: CANAKINUMAB
     Dosage: 150 MG, EVERY 6 WEEKS
     Route: 058
     Dates: start: 20200527
  37. ILARIS [Suspect]
     Active Substance: CANAKINUMAB
     Dosage: UNK
     Route: 058
     Dates: start: 20211012
  38. ILARIS [Suspect]
     Active Substance: CANAKINUMAB
     Dosage: 150 MG, EVERY 4 WEEKS
     Route: 058
  39. VITAMIN D [Concomitant]
     Active Substance: VITAMIN D NOS
     Indication: Bone density decreased
     Dosage: UNK
     Route: 065
  40. ANAKINRA [Concomitant]
     Active Substance: ANAKINRA
     Indication: Product used for unknown indication
     Dosage: UNK
     Route: 065
  41. CALCIUM [Concomitant]
     Active Substance: CALCIUM
     Indication: Bone density decreased
     Dosage: UNK
     Route: 065

REACTIONS (32)
  - Headache [Unknown]
  - Uveitis [Unknown]
  - Central nervous system inflammation [Not Recovered/Not Resolved]
  - Blood pressure decreased [Unknown]
  - Heart rate increased [Unknown]
  - Respiratory rate increased [Recovered/Resolved]
  - Diarrhoea [Recovered/Resolved]
  - Malaise [Recovered/Resolved]
  - Pyrexia [Recovered/Resolved]
  - Headache [Recovered/Resolved]
  - Ocular hyperaemia [Recovered/Resolved]
  - Cough [Recovering/Resolving]
  - Rhinorrhoea [Recovering/Resolving]
  - Clubbing [Unknown]
  - Respiratory rate increased [Unknown]
  - Headache [Unknown]
  - Abdominal discomfort [Unknown]
  - Lacrimation increased [Recovered/Resolved]
  - Vision blurred [Recovered/Resolved]
  - Vision blurred [Recovering/Resolving]
  - Nasal congestion [Recovering/Resolving]
  - Arthralgia [Unknown]
  - Pyrexia [Recovered/Resolved]
  - Abdominal pain upper [Unknown]
  - Nausea [Not Recovered/Not Resolved]
  - Vomiting [Recovered/Resolved]
  - Vomiting [Unknown]
  - Inappropriate schedule of product administration [Unknown]
  - Ocular hyperaemia [Unknown]
  - Photophobia [Unknown]
  - Vision blurred [Unknown]
  - Conjunctivitis [Unknown]

NARRATIVE: CASE EVENT DATE: 20150715
